FAERS Safety Report 4405338-X (Version None)
Quarter: 2004Q3

REPORT INFORMATION
  Report Type: 
  Country: None (occurrence: None)
  Receive Date: 20040715
  Receipt Date: 20040712
  Transmission Date: 20050211
  Serious: Yes (Hospitalization, Other)
  Sender: FDA-Public Use
  Company Number: TW-JNJFOC-20040702562

PATIENT
  Age: 50 Year
  Sex: Female

DRUGS (1)
  1. KETOCONAZOLE (KETOCONAZOLE) UNSPECIFIED [Suspect]
     Indication: ONYCHOMYCOSIS
     Dosage: 200 MG,  IN 1 DAY

REACTIONS (9)
  - ABDOMINAL DISTENSION [None]
  - ANOREXIA [None]
  - CHILLS [None]
  - CHROMATURIA [None]
  - HEPATIC NECROSIS [None]
  - HEPATOMEGALY [None]
  - MALAISE [None]
  - NAUSEA [None]
  - PROTHROMBIN TIME PROLONGED [None]
